FAERS Safety Report 11855016 (Version 2)
Quarter: 2015Q4

REPORT INFORMATION
  Report Type: Spontaneous
  Country: BD (occurrence: BD)
  Receive Date: 20151221
  Receipt Date: 20151228
  Transmission Date: 20160305
  Serious: Yes (Death)
  Sender: FDA-Public Use
  Company Number: BD-ROCHE-1680549

PATIENT
  Sex: Female

DRUGS (13)
  1. FLUOROURACIL. [Concomitant]
     Active Substance: FLUOROURACIL
     Indication: DEEP VEIN THROMBOSIS
  2. OXALIPLATIN. [Concomitant]
     Active Substance: OXALIPLATIN
     Indication: COLORECTAL CANCER METASTATIC
     Route: 042
  3. OXALIPLATIN. [Concomitant]
     Active Substance: OXALIPLATIN
     Indication: CHRONIC KIDNEY DISEASE
  4. AVASTIN [Suspect]
     Active Substance: BEVACIZUMAB
     Indication: DEEP VEIN THROMBOSIS
  5. FOLINIC ACID [Concomitant]
     Active Substance: LEUCOVORIN
     Indication: CHRONIC KIDNEY DISEASE
  6. FOLINIC ACID [Concomitant]
     Active Substance: LEUCOVORIN
     Indication: DEEP VEIN THROMBOSIS
  7. OXALIPLATIN. [Concomitant]
     Active Substance: OXALIPLATIN
     Indication: DEEP VEIN THROMBOSIS
  8. AVASTIN [Suspect]
     Active Substance: BEVACIZUMAB
     Indication: CHRONIC KIDNEY DISEASE
  9. FLUOROURACIL. [Concomitant]
     Active Substance: FLUOROURACIL
     Indication: COLORECTAL CANCER METASTATIC
     Route: 042
  10. FLUOROURACIL. [Concomitant]
     Active Substance: FLUOROURACIL
     Indication: CHRONIC KIDNEY DISEASE
  11. WARFARIN [Concomitant]
     Active Substance: WARFARIN
  12. AVASTIN [Suspect]
     Active Substance: BEVACIZUMAB
     Indication: COLORECTAL CANCER METASTATIC
     Route: 042
     Dates: start: 20151121
  13. FOLINIC ACID [Concomitant]
     Active Substance: LEUCOVORIN
     Indication: COLORECTAL CANCER METASTATIC
     Route: 042

REACTIONS (1)
  - Death [Fatal]

NARRATIVE: CASE EVENT DATE: 20151208
